FAERS Safety Report 13969743 (Version 3)
Quarter: 2019Q2

REPORT INFORMATION
  Report Type: Spontaneous
  Country: US (occurrence: US)
  Receive Date: 20170914
  Receipt Date: 20190409
  Transmission Date: 20190711
  Serious: Yes (Other)
  Sender: FDA-Public Use
  Company Number: US-PFIZER INC-2017392186

PATIENT
  Age: 33 Year
  Sex: Male
  Weight: 195 kg

DRUGS (7)
  1. AMLODIPINE [Concomitant]
     Active Substance: AMLODIPINE BESYLATE
     Dosage: 5 MG, DAILY
     Route: 048
  2. ASPIRIN (E.C.) [Concomitant]
     Active Substance: ASPIRIN
     Dosage: UNK UNK, 1X/DAY
     Route: 048
  3. METOPROLOL TARTRAS [Concomitant]
     Dosage: 50 MG, 2X/DAY
  4. PRAVASTATIN SODIUM. [Concomitant]
     Active Substance: PRAVASTATIN SODIUM
     Dosage: 40 MG, 1X/DAY
  5. NITROSTAT [Suspect]
     Active Substance: NITROGLYCERIN
     Indication: ANGINA PECTORIS
     Dosage: 0.4 MG, AS NEEDED
     Route: 060
     Dates: start: 2003
  6. RAMIPRIL. [Concomitant]
     Active Substance: RAMIPRIL
     Dosage: 5 MG, 1X/DAY
  7. ISOSORBIDE MONONITRAAT MERCK [Concomitant]
     Dosage: 60 MG, 3X/DAY
     Route: 048

REACTIONS (9)
  - Gait disturbance [Unknown]
  - Insomnia [Unknown]
  - Drug dependence [Unknown]
  - Chest discomfort [Unknown]
  - Blood pressure inadequately controlled [Unknown]
  - Myocardial infarction [Recovering/Resolving]
  - Weight increased [Unknown]
  - Asthenia [Unknown]
  - Angina pectoris [Unknown]

NARRATIVE: CASE EVENT DATE: 2006
